FAERS Safety Report 10467314 (Version 3)
Quarter: 2015Q1

REPORT INFORMATION
  Report Type: Spontaneous
  Country: US (occurrence: US)
  Receive Date: 20140922
  Receipt Date: 20150305
  Transmission Date: 20150720
  Serious: Yes (Death, Hospitalization, Other)
  Sender: FDA-Public Use
  Company Number: US-009507513-1409USA009892

PATIENT
  Sex: Female
  Weight: 69.39 kg

DRUGS (3)
  1. JANUMET [Suspect]
     Active Substance: METFORMIN HYDROCHLORIDE\SITAGLIPTIN PHOSPHATE
     Indication: TYPE 2 DIABETES MELLITUS
     Dosage: 1000/50 MG
     Route: 048
     Dates: start: 20100206
  2. JANUVIA [Suspect]
     Active Substance: SITAGLIPTIN PHOSPHATE
     Indication: TYPE 2 DIABETES MELLITUS
     Dosage: 100 MG, QD
     Route: 048
     Dates: start: 200704
  3. JANUVIA [Suspect]
     Active Substance: SITAGLIPTIN PHOSPHATE
     Dosage: 50 MG, QD
     Route: 048
     Dates: start: 20070424

REACTIONS (15)
  - Cataract nuclear [Unknown]
  - Cholelithiasis [Unknown]
  - Cataract operation [Unknown]
  - Cholecystitis [Unknown]
  - Pulmonary mass [Unknown]
  - Pancreatitis [Unknown]
  - Hypercholesterolaemia [Unknown]
  - Paracentesis [Unknown]
  - Hypertension [Unknown]
  - Pneumobilia [Unknown]
  - Adenocarcinoma pancreas [Fatal]
  - Cystocele [Unknown]
  - Vitamin D deficiency [Unknown]
  - Anaemia [Unknown]
  - Gastrooesophageal reflux disease [Unknown]

NARRATIVE: CASE EVENT DATE: 200903
